FAERS Safety Report 6359296-1 (Version None)
Quarter: 2009Q3

REPORT INFORMATION
  Report Type: 
  Country: None (occurrence: None)
  Receive Date: 20090917
  Receipt Date: 20090902
  Transmission Date: 20100115
  Serious: Yes (Life-Threatening, Hospitalization)
  Sender: FDA-Public Use
  Company Number: US-ROCHE-644631

PATIENT
  Sex: Male
  Weight: 115 kg

DRUGS (6)
  1. PEGASYS [Suspect]
     Indication: HEPATITIS C
     Dosage: DOSE: 90-135
     Route: 058
     Dates: start: 20090115, end: 20090705
  2. RIBAVIRIN [Suspect]
     Indication: HEPATITIS C
     Route: 048
     Dates: start: 20090115, end: 20090705
  3. FUROSEMIDE [Concomitant]
     Indication: ASCITES
     Route: 048
  4. SPIRONOLACTONE [Concomitant]
     Indication: ASCITES
     Route: 048
  5. NADOLOL [Concomitant]
     Indication: HYPERTENSION
     Route: 048
  6. AMOXICILLIN [Concomitant]
     Dosage: DOSE TAKEN BEFORE DENTAL APPOINTMENTS

REACTIONS (14)
  - ABDOMINAL PAIN UPPER [None]
  - AMMONIA INCREASED [None]
  - ANAEMIA [None]
  - ASCITES [None]
  - BLOOD ALBUMIN DECREASED [None]
  - CELLULITIS [None]
  - COGNITIVE DISORDER [None]
  - CONFUSIONAL STATE [None]
  - ESCHERICHIA SEPSIS [None]
  - HEPATIC CIRRHOSIS [None]
  - HEPATIC FAILURE [None]
  - OEDEMA PERIPHERAL [None]
  - RENAL FAILURE ACUTE [None]
  - WEIGHT INCREASED [None]
